FAERS Safety Report 5326137-0 (Version None)
Quarter: 2007Q2

REPORT INFORMATION
  Report Type: 
  Country: None (occurrence: None)
  Receive Date: 20070510
  Receipt Date: 20070424
  Transmission Date: 20071010
  Serious: Yes (Hospitalization)
  Sender: FDA-Public Use
  Company Number: 8023444

PATIENT
  Age: 20 Year
  Sex: Female
  Weight: 73 kg

DRUGS (2)
  1. KEPPRA [Suspect]
     Indication: CONVULSION
     Dosage: 1000 MG;
  2. KEPPRA [Suspect]
     Indication: CONVULSION
     Dosage: 500 MG 2/D;

REACTIONS (10)
  - DIZZINESS [None]
  - DRUG TOXICITY [None]
  - DYSARTHRIA [None]
  - DYSPHEMIA [None]
  - ELECTROENCEPHALOGRAM ABNORMAL [None]
  - EUPHORIC MOOD [None]
  - FATIGUE [None]
  - MENTAL IMPAIRMENT [None]
  - SPEECH DISORDER [None]
  - WALKING AID USER [None]
